FAERS Safety Report 20055809 (Version 9)
Quarter: 2022Q2

REPORT INFORMATION
  Report Type: Report from Study
  Country: US (occurrence: US)
  Receive Date: 20211111
  Receipt Date: 20220611
  Transmission Date: 20220720
  Serious: Yes (Hospitalization)
  Sender: FDA-Public Use
  Company Number: US-AMGEN-USACT2021171116

PATIENT
  Age: 73 Year
  Sex: Male
  Weight: 68.82 kg

DRUGS (15)
  1. AMG-510 [Suspect]
     Active Substance: AMG-510
     Indication: K-ras gene mutation
     Dosage: 960 MILLIGRAM
     Route: 048
     Dates: start: 20210804
  2. AMG-510 [Suspect]
     Active Substance: AMG-510
     Indication: Non-small cell lung cancer stage IV
     Dosage: 480 MILLIGRAM
     Route: 048
     Dates: start: 20210827
  3. PANITUMUMAB [Suspect]
     Active Substance: PANITUMUMAB
     Indication: K-ras gene mutation
     Dosage: 335 MILLIGRAM
     Route: 042
     Dates: start: 20210804
  4. PANITUMUMAB [Suspect]
     Active Substance: PANITUMUMAB
     Indication: Non-small cell lung cancer stage IV
  5. TRAMETINIB [Suspect]
     Active Substance: TRAMETINIB
     Indication: K-ras gene mutation
     Dosage: 1.5 MILLIGRAM
     Route: 048
     Dates: start: 20210804
  6. TRAMETINIB [Suspect]
     Active Substance: TRAMETINIB
     Indication: Non-small cell lung cancer stage IV
     Dosage: 1 MILLIGRAM
     Route: 048
     Dates: start: 20210827
  7. CYANOCOBALAMIN [Concomitant]
     Active Substance: CYANOCOBALAMIN
     Indication: Supplementation therapy
     Dosage: 1000 MICROGRAM
     Route: 048
  8. XARELTO [Concomitant]
     Active Substance: RIVAROXABAN
     Indication: Cerebrovascular accident
     Dosage: 10 MILLIGRAM
     Route: 048
     Dates: start: 201912
  9. LISINOPRIL [Concomitant]
     Active Substance: LISINOPRIL
     Indication: Hypertension
     Dosage: 2.5 MILLIGRAM
     Route: 048
     Dates: start: 201901
  10. PAROXETINE [Concomitant]
     Active Substance: PAROXETINE
     Indication: Depression
     Dosage: 20 MILLIGRAM
     Route: 048
     Dates: start: 201902
  11. CETIRIZINE [Concomitant]
     Active Substance: CETIRIZINE HYDROCHLORIDE
     Indication: Cough
     Dosage: 10 MILLIGRAM
     Route: 048
     Dates: start: 2019
  12. CHOLECALCIFEROL [Concomitant]
     Active Substance: CHOLECALCIFEROL
     Indication: Supplementation therapy
     Dosage: 10 MICROGRAM
     Route: 048
     Dates: start: 2019
  13. ASPIRIN [Concomitant]
     Active Substance: ASPIRIN
     Indication: Cardiovascular event prophylaxis
     Dosage: 81 MILLIGRAM
     Route: 048
     Dates: start: 20210712
  14. MINOCYCLINE [Concomitant]
     Active Substance: MINOCYCLINE HYDROCHLORIDE
     Indication: Rash
     Dosage: 100 MILLIGRAM
     Route: 048
     Dates: start: 20210805, end: 20211129
  15. POTASSIUM [Concomitant]
     Active Substance: POTASSIUM
     Dosage: 20 MILLIEQUIVALENT
     Route: 048
     Dates: start: 2020

REACTIONS (4)
  - Diarrhoea [Recovered/Resolved]
  - Diarrhoea [Recovered/Resolved]
  - Dehydration [Recovered/Resolved]
  - Acute kidney injury [Recovered/Resolved]

NARRATIVE: CASE EVENT DATE: 20210818
